FAERS Safety Report 13825444 (Version 6)
Quarter: 2017Q4

REPORT INFORMATION
  Report Type: Spontaneous
  Country: US (occurrence: US)
  Receive Date: 20170802
  Receipt Date: 20171109
  Transmission Date: 20180320
  Serious: Yes (Other)
  Sender: FDA-Public Use
  Company Number: US-JNJFOC-20170725330

PATIENT
  Age: 52 Year
  Sex: Male

DRUGS (2)
  1. XARELTO [Suspect]
     Active Substance: RIVAROXABAN
     Indication: PRODUCT USED FOR UNKNOWN INDICATION
     Route: 048
     Dates: start: 20170526, end: 20170717
  2. STELARA [Concomitant]
     Active Substance: USTEKINUMAB
     Indication: PRODUCT USED FOR UNKNOWN INDICATION

REACTIONS (8)
  - Haematochezia [Not Recovered/Not Resolved]
  - Blood urine present [Not Recovered/Not Resolved]
  - Blindness [Unknown]
  - Oedema peripheral [Not Recovered/Not Resolved]
  - Drug ineffective [Unknown]
  - Eye haemorrhage [Not Recovered/Not Resolved]
  - Headache [Recovering/Resolving]
  - Dizziness [Not Recovered/Not Resolved]

NARRATIVE: CASE EVENT DATE: 20170526
